FAERS Safety Report 11820026 (Version 1)
Quarter: 2015Q4

REPORT INFORMATION
  Report Type: Spontaneous
  Country: US (occurrence: US)
  Receive Date: 20151210
  Receipt Date: 20151210
  Transmission Date: 20160305
  Serious: Yes (Other)
  Sender: FDA-Public Use
  Company Number: US-BEH-2015056378

PATIENT
  Sex: Female
  Weight: 66 kg

DRUGS (29)
  1. SUCRALFATE. [Concomitant]
     Active Substance: SUCRALFATE
  2. DICLOFENAC SODIUM. [Concomitant]
     Active Substance: DICLOFENAC SODIUM
  3. ZESTRIL [Concomitant]
     Active Substance: LISINOPRIL
  4. SPIRIVA [Concomitant]
     Active Substance: TIOTROPIUM BROMIDE MONOHYDRATE
  5. PLAVIX [Concomitant]
     Active Substance: CLOPIDOGREL BISULFATE
  6. FERROUS SULFATE [Concomitant]
     Active Substance: FERROUS SULFATE\FERROUS SULFATE, DRIED
  7. LMX [Concomitant]
     Active Substance: LIDOCAINE
  8. CYMBALTA [Concomitant]
     Active Substance: DULOXETINE HYDROCHLORIDE
  9. PREDNISONE. [Concomitant]
     Active Substance: PREDNISONE
  10. GABAPENTIN. [Concomitant]
     Active Substance: GABAPENTIN
  11. NITROFURANTOIN. [Concomitant]
     Active Substance: NITROFURANTOIN
  12. ALBUTEROL SULFATE. [Concomitant]
     Active Substance: ALBUTEROL SULFATE
  13. PROAIR HFA [Concomitant]
     Active Substance: ALBUTEROL SULFATE
  14. HIZENTRA [Suspect]
     Active Substance: HUMAN IMMUNOGLOBULIN G
     Indication: IMMUNODEFICIENCY COMMON VARIABLE
     Dosage: 1 GM 5 ML VIAL
     Route: 058
  15. NITROSTAT [Concomitant]
     Active Substance: NITROGLYCERIN
  16. VITAMIN D3 [Concomitant]
     Active Substance: CHOLECALCIFEROL
  17. METOPROLOL TARTRATE. [Concomitant]
     Active Substance: METOPROLOL TARTRATE
  18. PRAVACHOL [Concomitant]
     Active Substance: PRAVASTATIN SODIUM
  19. NORVASC [Concomitant]
     Active Substance: AMLODIPINE BESYLATE
  20. TRAZODONE [Concomitant]
     Active Substance: TRAZODONE HYDROCHLORIDE
  21. VITAMIN B12 [Concomitant]
     Active Substance: CYANOCOBALAMIN
  22. HIZENTRA [Suspect]
     Active Substance: HUMAN IMMUNOGLOBULIN G
     Dosage: 2 GM 10 ML VIALS
     Route: 058
  23. LEFLUNOMIDE. [Concomitant]
     Active Substance: LEFLUNOMIDE
  24. LEVOTHYROXINE. [Concomitant]
     Active Substance: LEVOTHYROXINE
  25. ASPIRIN. [Concomitant]
     Active Substance: ASPIRIN
  26. REGLAN [Concomitant]
     Active Substance: METOCLOPRAMIDE HYDROCHLORIDE
  27. ADVAIR HFA [Concomitant]
     Active Substance: FLUTICASONE PROPIONATE\SALMETEROL XINAFOATE
  28. ESTRACE [Concomitant]
     Active Substance: ESTRADIOL
  29. NORCO [Concomitant]
     Active Substance: ACETAMINOPHEN\HYDROCODONE BITARTRATE

REACTIONS (3)
  - Influenza [Unknown]
  - Transient ischaemic attack [Unknown]
  - Urinary tract infection [Unknown]
